FAERS Safety Report 6609999-6 (Version None)
Quarter: 2010Q1

REPORT INFORMATION
  Report Type: 
  Country: None (occurrence: None)
  Receive Date: 20100302
  Receipt Date: 20100219
  Transmission Date: 20100710
  Serious: Yes (Other)
  Sender: FDA-Public Use
  Company Number: JP-BAXTER-2010BH004636

PATIENT

DRUGS (2)
  1. CYCLOPHOSPHAMIDE [Suspect]
     Indication: GLOMERULONEPHRITIS MEMBRANOUS
     Route: 048
  2. PREDNISOLONE [Concomitant]
     Indication: GLOMERULONEPHRITIS MEMBRANOUS
     Route: 048

REACTIONS (1)
  - SEPSIS [None]
